FAERS Safety Report 18056313 (Version 1)
Quarter: 2020Q3

REPORT INFORMATION
  Report Type: Report from Study
  Country: GB (occurrence: GB)
  Receive Date: 20200722
  Receipt Date: 20200722
  Transmission Date: 20201103
  Serious: Yes (Other)
  Sender: FDA-Public Use
  Company Number: GB-JNJFOC-20200723741

PATIENT
  Sex: Female

DRUGS (6)
  1. TRAMADOL. [Concomitant]
     Active Substance: TRAMADOL
  2. FOLIC ACID. [Concomitant]
     Active Substance: FOLIC ACID
  3. SUMATRIPTAN. [Concomitant]
     Active Substance: SUMATRIPTAN
  4. STELARA [Suspect]
     Active Substance: USTEKINUMAB
     Indication: CROHN^S DISEASE
     Route: 058
     Dates: start: 201811
  5. VITAMIN D3 [Concomitant]
     Active Substance: CHOLECALCIFEROL
  6. STELARA [Suspect]
     Active Substance: USTEKINUMAB

REACTIONS (4)
  - Fluid retention [Recovered/Resolved]
  - Weight increased [Unknown]
  - Infection [Unknown]
  - Crohn^s disease [Unknown]
